FAERS Safety Report 11787275 (Version 3)
Quarter: 2015Q4

REPORT INFORMATION
  Report Type: Report from Study
  Country: DE (occurrence: DE)
  Receive Date: 20151130
  Receipt Date: 20151210
  Transmission Date: 20160305
  Serious: Yes (Other)
  Sender: FDA-Public Use
  Company Number: DE-SA-2014SA171777

PATIENT
  Age: 38 Year
  Sex: Female

DRUGS (6)
  1. LEMTRADA [Suspect]
     Active Substance: ALEMTUZUMAB
     Indication: MULTIPLE SCLEROSIS
     Route: 041
     Dates: start: 20141118, end: 20141120
  2. CORTISONE [Concomitant]
     Active Substance: CORTISONE\HYDROCORTISONE
  3. AERIUS [Concomitant]
     Active Substance: DESLORATADINE
     Indication: HYPERSENSITIVITY
     Route: 048
     Dates: start: 20141117, end: 20141202
  4. LEMTRADA [Suspect]
     Active Substance: ALEMTUZUMAB
     Indication: MULTIPLE SCLEROSIS
     Route: 041
     Dates: start: 20141124, end: 20141125
  5. AERIUS [Concomitant]
     Active Substance: DESLORATADINE
     Indication: PROPHYLAXIS
     Route: 048
     Dates: start: 20141117, end: 20141202
  6. ACICLOVIR [Concomitant]
     Active Substance: ACYCLOVIR
     Indication: PROPHYLAXIS
     Route: 048
     Dates: start: 20141118, end: 20141216

REACTIONS (8)
  - Generalised erythema [Recovering/Resolving]
  - Bacterial test [Not Recovered/Not Resolved]
  - Pruritus [Recovering/Resolving]
  - Urinary tract infection [Not Recovered/Not Resolved]
  - Bacterial disease carrier [Not Recovered/Not Resolved]
  - Unevaluable event [Recovering/Resolving]
  - Sleep disorder [Recovering/Resolving]
  - Urinary retention [Not Recovered/Not Resolved]

NARRATIVE: CASE EVENT DATE: 2014
